FAERS Safety Report 4847646-4 (Version None)
Quarter: 2005Q4

REPORT INFORMATION
  Report Type: 
  Country: None (occurrence: None)
  Receive Date: 20051205
  Receipt Date: 20051121
  Transmission Date: 20060501
  Serious: Yes (Other)
  Sender: FDA-Public Use
  Company Number: 2005151527

PATIENT
  Age: 93 Year
  Sex: Female

DRUGS (4)
  1. DOXAZOSIN MESYLATE [Suspect]
     Indication: ILL-DEFINED DISORDER
     Dosage: 2 MG (DAILY), ORAL
     Route: 048
  2. NORVASC [Suspect]
     Indication: ILL-DEFINED DISORDER
     Dosage: 5 MG (DAILY), ORAL
     Route: 048
  3. LASIX [Concomitant]
  4. ALDACTONE [Concomitant]

REACTIONS (2)
  - ATRIAL FIBRILLATION [None]
  - BRADYCARDIA [None]
